FAERS Safety Report 5738125-0 (Version None)
Quarter: 2008Q2

REPORT INFORMATION
  Report Type: 
  Country: None (occurrence: None)
  Receive Date: 20080509
  Receipt Date: 20071002
  Transmission Date: 20081010
  Serious: Yes (Hospitalization)
  Sender: FDA-Public Use
  Company Number: PHEH2007US13174

PATIENT
  Age: 68 Year
  Sex: Male
  Weight: 98.9 kg

DRUGS (2)
  1. TEGRETOL [Suspect]
     Indication: CONVULSION
     Dosage: 400 MG, QD, ORAL
     Route: 048
     Dates: start: 20070420, end: 20070523
  2. TEMODAR [Suspect]
     Indication: GLIOMATOSIS CEREBRI
     Dosage: 325 MG, QD, ORAL
     Route: 048
     Dates: start: 20070502, end: 20070506

REACTIONS (13)
  - APLASTIC ANAEMIA [None]
  - BIOPSY BONE MARROW ABNORMAL [None]
  - HAEMATOCRIT DECREASED [None]
  - HEMIPARESIS [None]
  - LEUKOPENIA [None]
  - LYMPHOCYTE COUNT INCREASED [None]
  - NEUTROPENIA [None]
  - NEUTROPHIL COUNT DECREASED [None]
  - PARAESTHESIA [None]
  - PLATELET COUNT DECREASED [None]
  - RED BLOOD CELL COUNT DECREASED [None]
  - THROMBOCYTOPENIA [None]
  - WHITE BLOOD CELL COUNT DECREASED [None]
